FAERS Safety Report 6978271-7 (Version None)
Quarter: 2010Q3

REPORT INFORMATION
  Report Type: 
  Country: None (occurrence: None)
  Receive Date: 20100913
  Receipt Date: 20100830
  Transmission Date: 20110219
  Serious: Yes (Other)
  Sender: FDA-Public Use
  Company Number: PHHY2010BR57974

PATIENT
  Sex: Male

DRUGS (10)
  1. DIOVAN [Suspect]
     Dosage: 320 MG, BID
  2. HYGROTON [Suspect]
     Dosage: 25 MG, 01 TABLET, DAILY
  3. DIAMICRON [Concomitant]
     Indication: DIABETES MELLITUS
     Dosage: 30 MG, 03 TABLET AT LUNCH
     Dates: start: 20100818
  4. INSULIN [Concomitant]
     Dosage: 35 IU, UNK
  5. LIPITOR [Concomitant]
     Indication: BLOOD CHOLESTEROL
     Dosage: 40 MG, TABLET
  6. LIPITOR [Concomitant]
     Indication: BLOOD TRIGLYCERIDES
  7. SUSTRATE [Concomitant]
     Indication: CARDIAC DISORDER
     Dosage: 1 TABLET, TWICE A DAY
     Route: 048
     Dates: start: 19870601
  8. CARDIZEM CD [Concomitant]
     Dosage: 180 MG, ONE TABLET IN MORNING
     Route: 048
  9. SOMALGIN [Concomitant]
     Dosage: 325MG, 1 TABLET DAILY
     Route: 048
  10. ANGIPRESS [Concomitant]
     Indication: CARDIAC DISORDER
     Dosage: 25 MG, 1 TABLET DAILY
     Route: 048

REACTIONS (1)
  - CATARACT [None]
